FAERS Safety Report 5918347-6 (Version None)
Quarter: 2008Q4

REPORT INFORMATION
  Report Type: 
  Country: None (occurrence: None)
  Receive Date: 20081014
  Receipt Date: 20081001
  Transmission Date: 20090506
  Serious: Yes (Hospitalization)
  Sender: FDA-Public Use
  Company Number: CA-ELI_LILLY_AND_COMPANY-CA200810000417

PATIENT
  Sex: Female

DRUGS (2)
  1. STRATTERA [Suspect]
     Indication: ATTENTION DEFICIT/HYPERACTIVITY DISORDER
     Dosage: 40 MG, DAILY (1/D)
     Route: 048
  2. STRATTERA [Suspect]
     Dosage: 40 MG, DAILY (1/D)
     Route: 048

REACTIONS (9)
  - CARDIAC DISORDER [None]
  - CONSTIPATION [None]
  - DIZZINESS [None]
  - HEART RATE INCREASED [None]
  - HYPERHIDROSIS [None]
  - INTRAOCULAR PRESSURE INCREASED [None]
  - NAUSEA [None]
  - PALPITATIONS [None]
  - VOMITING [None]
